FAERS Safety Report 8421173-X (Version None)
Quarter: 2012Q2

REPORT INFORMATION
  Report Type: 
  Country: None (occurrence: None)
  Receive Date: 20120608
  Receipt Date: 20120606
  Transmission Date: 20120825
  Serious: Yes (Death)
  Sender: FDA-Public Use
  Company Number: US-CELGENEUS-163-21880-12052020

PATIENT
  Sex: Female

DRUGS (2)
  1. ARANESP [Concomitant]
     Dosage: 200 MICROGRAM
     Route: 058
     Dates: start: 20110207
  2. REVLIMID [Suspect]
     Indication: MULTIPLE MYELOMA
     Dosage: 10 MILLIGRAM
     Route: 048
     Dates: start: 20120405

REACTIONS (1)
  - MULTIPLE MYELOMA [None]
